FAERS Safety Report 8886903 (Version 2)
Quarter: 2012Q4

REPORT INFORMATION
  Report Type: 
  Country: FR (occurrence: FR)
  Receive Date: 20121105
  Receipt Date: 20121206
  Transmission Date: 20130627
  Serious: Yes (Death)
  Sender: FDA-Public Use
  Company Number: FR-PFIZER INC-2012272333

PATIENT
  Age: 72 Year
  Sex: Female

DRUGS (13)
  1. ADRIBLASTINE [Suspect]
     Indication: BURKITT^S LYMPHOMA
     Dosage: UNK
     Route: 042
     Dates: start: 20120924
  2. ADRIBLASTINE [Suspect]
     Dosage: 91 mg, single
     Route: 042
     Dates: start: 20121008, end: 20121008
  3. ELDISINE [Suspect]
     Indication: BURKITT^S LYMPHOMA
     Dosage: 4.55 mg, single
     Route: 042
     Dates: start: 20120924, end: 20120924
  4. ENDOXAN [Suspect]
     Indication: BURKITT^S LYMPHOMA
     Dosage: UNK
     Route: 042
     Dates: start: 20120924
  5. ENDOXAN [Suspect]
     Dosage: 760 mg, single
     Route: 042
     Dates: start: 20121008, end: 20121008
  6. ENDOXAN [Suspect]
     Dosage: 1140 mg, single
     Route: 042
     Dates: start: 20121009, end: 20121009
  7. MABTHERA [Suspect]
     Indication: BURKITT^S LYMPHOMA
     Dosage: 570 mg, single
     Route: 042
     Dates: start: 20121006, end: 20121006
  8. VINCRISTINE [Suspect]
     Indication: BURKITT^S LYMPHOMA
     Dosage: UNK
     Route: 042
     Dates: start: 20120924
  9. VINCRISTINE [Suspect]
     Dosage: 2 mg, single
     Route: 042
     Dates: start: 20121007, end: 20121007
  10. METHOTREXATE MERCK [Suspect]
     Indication: BURKITT^S LYMPHOMA
     Dosage: 15 mg, single
     Route: 037
     Dates: start: 20121008, end: 20121008
  11. METHYLPREDNISOLONE MYLAN [Concomitant]
     Dosage: 20 mg, single
     Route: 037
     Dates: start: 20121008, end: 20121008
  12. CORTANCYL [Concomitant]
     Indication: BURKITT^S LYMPHOMA
     Dosage: 80 mg, 1x/day
     Route: 048
     Dates: start: 20120924, end: 20120928
  13. CORTANCYL [Concomitant]
     Dosage: 91 mg, 1x/day
     Route: 048
     Dates: start: 20121008, end: 20121009

REACTIONS (3)
  - Cerebral haemorrhage [Fatal]
  - Bone marrow failure [Fatal]
  - Acinetobacter bacteraemia [Fatal]
